FAERS Safety Report 23656585 (Version 3)
Quarter: 2024Q2

REPORT INFORMATION
  Report Type: Report from Study
  Country: US (occurrence: US)
  Receive Date: 20240321
  Receipt Date: 20240510
  Transmission Date: 20240716
  Serious: Yes (Other)
  Sender: FDA-Public Use
  Company Number: US-ARGENX-2024-ARGX-US001380

PATIENT

DRUGS (1)
  1. VYVGART [Suspect]
     Active Substance: EFGARTIGIMOD ALFA-FCAB
     Indication: Myasthenia gravis
     Dosage: UNK
     Route: 042
     Dates: start: 20240226

REACTIONS (12)
  - Dupuytren^s contracture [Unknown]
  - Myasthenia gravis [Not Recovered/Not Resolved]
  - Throat tightness [Unknown]
  - Eye disorder [Unknown]
  - Dizziness postural [Recovering/Resolving]
  - Dyspnoea exertional [Unknown]
  - Chest pain [Recovered/Resolved]
  - Pain in jaw [Recovered/Resolved]
  - Diarrhoea [Recovering/Resolving]
  - Hyperhidrosis [Recovering/Resolving]
  - Nightmare [Recovering/Resolving]
  - Drug ineffective [Not Recovered/Not Resolved]

NARRATIVE: CASE EVENT DATE: 20240228
